FAERS Safety Report 12395399 (Version 3)
Quarter: 2016Q3

REPORT INFORMATION
  Report Type: Spontaneous
  Country: JP (occurrence: JP)
  Receive Date: 20160523
  Receipt Date: 20160727
  Transmission Date: 20161109
  Serious: Yes (Other)
  Sender: FDA-Public Use
  Company Number: JP-B.I. PHARMACEUTICALS,INC./RIDGEFIELD-2016-BI-32592NB

PATIENT
  Age: 48 Year
  Sex: Female
  Weight: 75.3 kg

DRUGS (5)
  1. SUREPOST [Concomitant]
     Active Substance: REPAGLINIDE
     Indication: TYPE 2 DIABETES MELLITUS
     Dosage: 1.5 MG
     Route: 048
  2. JARDIANCE [Suspect]
     Active Substance: EMPAGLIFLOZIN
     Indication: TYPE 2 DIABETES MELLITUS
     Dosage: 10 MG
     Route: 048
     Dates: start: 20160430
  3. METGLUCO [Concomitant]
     Active Substance: METFORMIN HYDROCHLORIDE
     Indication: TYPE 2 DIABETES MELLITUS
     Dosage: 2000 MG
     Route: 048
  4. PREDNISOLONE. [Suspect]
     Active Substance: PREDNISOLONE
     Indication: SYSTEMIC LUPUS ERYTHEMATOSUS
     Dosage: 15 MG
     Route: 048
  5. JARDIANCE [Suspect]
     Active Substance: EMPAGLIFLOZIN
     Dosage: 20 MG
     Route: 048
     Dates: start: 20160503, end: 20160513

REACTIONS (5)
  - Sepsis [Recovered/Resolved]
  - Incorrect dose administered [Unknown]
  - Thirst [Not Recovered/Not Resolved]
  - Urine output increased [Not Recovered/Not Resolved]
  - Cystitis [Recovered/Resolved]

NARRATIVE: CASE EVENT DATE: 2016
